FAERS Safety Report 16790906 (Version 1)
Quarter: 2019Q3

REPORT INFORMATION
  Report Type: Spontaneous
  Country: US (occurrence: US)
  Receive Date: 20190910
  Receipt Date: 20190910
  Transmission Date: 20191005
  Serious: Yes (Hospitalization)
  Sender: FDA-Public Use
  Company Number: US-TEVA-2019-US-1105381

PATIENT
  Age: 61 Year
  Sex: Male

DRUGS (1)
  1. METHOTREXATE. [Suspect]
     Active Substance: METHOTREXATE
     Indication: PSORIASIS
     Dosage: UNPRESCRIBED DOSES OF METHOTREXATE, UP TO 25 MG FIVE DAYS/WEEK
     Route: 065

REACTIONS (3)
  - Overdose [Unknown]
  - Toxic epidermal necrolysis [Recovering/Resolving]
  - Toxicity to various agents [Recovering/Resolving]
